FAERS Safety Report 24865065 (Version 1)
Quarter: 2025Q1

REPORT INFORMATION
  Report Type: Spontaneous
  Country: US (occurrence: US)
  Receive Date: 20250121
  Receipt Date: 20250121
  Transmission Date: 20250409
  Serious: No
  Sender: ABBVIE
  Company Number: US-ABBVIE-6086870

PATIENT
  Sex: Female

DRUGS (1)
  1. LINZESS [Suspect]
     Active Substance: LINACLOTIDE
     Indication: Constipation
     Route: 048
     Dates: start: 20241214

REACTIONS (6)
  - Blood pressure increased [Unknown]
  - Therapeutic product effect variable [Unknown]
  - Dizziness [Unknown]
  - Constipation [Unknown]
  - Malaise [Unknown]
  - Illness [Unknown]
